FAERS Safety Report 9162024 (Version 1)
Quarter: 2013Q1

REPORT INFORMATION
  Report Type: Spontaneous
  Country: US (occurrence: None)
  Receive Date: 20130204
  Receipt Date: 20130204
  Transmission Date: 20140127
  Serious: Yes (Death)
  Sender: FDA-Public Use
  Company Number: 2013010116

PATIENT
  Sex: 0

DRUGS (7)
  1. CARISOPRODOL [Suspect]
     Indication: COMPLETED SUICIDE
  2. ALCOHOL [Suspect]
     Indication: COMPLETED SUICIDE
  3. HYDROCODONE [Suspect]
     Indication: COMPLETED SUICIDE
  4. DIHYDROCODEINE [Suspect]
     Indication: COMPLETED SUICIDE
  5. DIAZEPAM [Suspect]
     Indication: COMPLETED SUICIDE
  6. OXAZEPAM [Suspect]
     Indication: COMPLETED SUICIDE
  7. ZOPLICONE [Suspect]
     Indication: COMPLETED SUICIDE

REACTIONS (2)
  - Completed suicide [None]
  - Toxicity to various agents [None]
